FAERS Safety Report 6391947-8 (Version None)
Quarter: 2009Q4

REPORT INFORMATION
  Report Type: 
  Country: None (occurrence: None)
  Receive Date: 20091007
  Receipt Date: 20091002
  Transmission Date: 20100525
  Serious: Yes (Death, Hospitalization)
  Sender: FDA-Public Use
  Company Number: A0810154A

PATIENT
  Age: 86 Year
  Sex: Male

DRUGS (6)
  1. ADVAIR DISKUS 100/50 [Suspect]
     Indication: CHRONIC OBSTRUCTIVE PULMONARY DISEASE
     Route: 055
     Dates: start: 20070101, end: 20090902
  2. AVODART [Suspect]
     Indication: BENIGN PROSTATIC HYPERPLASIA
     Dosage: .5MG UNKNOWN
     Route: 048
     Dates: end: 20090902
  3. ZOLPIDEM TARTRATE [Concomitant]
  4. COLCHICINE [Concomitant]
  5. NIFEDIPINE [Concomitant]
  6. FLOMAX [Concomitant]

REACTIONS (2)
  - MULTI-ORGAN FAILURE [None]
  - PNEUMONIA BACTERIAL [None]
